FAERS Safety Report 9425410 (Version 3)
Quarter: 2013Q4

REPORT INFORMATION
  Report Type: Spontaneous
  Country: GB (occurrence: GB)
  Receive Date: 20130729
  Receipt Date: 20131217
  Transmission Date: 20140711
  Serious: Yes (Other)
  Sender: FDA-Public Use
  Company Number: GB-TEVA-420240ISR

PATIENT
  Age: 55 Year
  Sex: Female
  Weight: 83.6 kg

DRUGS (4)
  1. ATORVASTATIN [Suspect]
     Indication: BLOOD CHOLESTEROL INCREASED
     Dates: start: 20130411, end: 20130601
  2. LEVOTHYROXINE [Concomitant]
     Dosage: FOR OVER 20 YEARS
  3. FLUOXETINE [Concomitant]
     Dates: start: 2010
  4. AMLODIPINE [Concomitant]
     Indication: HYPERTENSION
     Dosage: 10 YEARS

REACTIONS (7)
  - Depression [Unknown]
  - Personality change [Recovered/Resolved]
  - Paranoia [Recovered/Resolved]
  - Muscular weakness [Recovered/Resolved]
  - Anxiety [Recovered/Resolved]
  - Movement disorder [Recovered/Resolved]
  - Fatigue [Recovered/Resolved]
